FAERS Safety Report 18748347 (Version 1)
Quarter: 2021Q1

REPORT INFORMATION
  Report Type: Spontaneous
  Country: NO (occurrence: NO)
  Receive Date: 20210116
  Receipt Date: 20210116
  Transmission Date: 20210419
  Serious: Yes (Hospitalization)
  Sender: FDA-Public Use
  Company Number: NO-ROCHE-2750224

PATIENT
  Age: 11 Year
  Sex: Female

DRUGS (11)
  1. CELLCEPT [Concomitant]
     Active Substance: MYCOPHENOLATE MOFETIL\MYCOPHENOLATE MOFETIL HYDROCHLORIDE
     Indication: JUVENILE IDIOPATHIC ARTHRITIS
  2. SOLU?MEDROL [Concomitant]
     Active Substance: METHYLPREDNISOLONE SODIUM SUCCINATE
     Indication: IRIDOCYCLITIS
  3. DEXCHLORPHENIRAMINE [Concomitant]
     Active Substance: DEXCHLORPHENIRAMINE
     Indication: PREMEDICATION
     Dosage: GIVEN 25 MINUTES BEFORE INFUSION WITH ROACTEMRA ON 09/DEC/2020.
  4. PREDNISOLONE. [Concomitant]
     Active Substance: PREDNISOLONE
     Dosage: AS NEEDED IN PERIODS.
  5. MONOPEX [Concomitant]
     Dosage: STRENGTH 1 MG/ML
  6. ZYRTEC (NORWAY) [Concomitant]
     Dosage: AS NEEDED MEDICATION, BUT HAVE USED THIS DAILY SINCE INITIATION.
     Dates: start: 20201111
  7. ROACTEMRA [Suspect]
     Active Substance: TOCILIZUMAB
     Indication: JUVENILE IDIOPATHIC ARTHRITIS
     Dosage: STRENGHT: 20 MG/ML.?320 MG IS THE DOSAGE THE PATIENT HAVE BEEN RECEIVING THE PAST YEAR. LAST TREATME
     Route: 042
     Dates: start: 201809, end: 20201111
  8. NEXIUM [Concomitant]
     Active Substance: ESOMEPRAZOLE MAGNESIUM
     Indication: ABDOMINAL PAIN
     Dates: start: 202011
  9. ULTRACORTENOL [Concomitant]
     Active Substance: PREDNISOLONE
     Dosage: EVENING.
     Route: 047
  10. ROACTEMRA [Suspect]
     Active Substance: TOCILIZUMAB
     Indication: IRIDOCYCLITIS
     Dosage: THE INFUSION WAS STARTED WITH SPEED 10 ML/H, AS PER PROTOCOL, BUT DUE TO STARTING ADVERSE REACTION,
     Route: 042
     Dates: start: 20201209, end: 20201209
  11. CELLCEPT [Concomitant]
     Active Substance: MYCOPHENOLATE MOFETIL\MYCOPHENOLATE MOFETIL HYDROCHLORIDE
     Indication: IRIDOCYCLITIS
     Dates: start: 201809

REACTIONS (6)
  - Dyspnoea [Recovered/Resolved]
  - Urticaria [Recovered/Resolved]
  - Urticaria [Recovered/Resolved]
  - Throat irritation [Recovered/Resolved]
  - Rash maculo-papular [Recovered/Resolved]
  - Pruritus [Recovered/Resolved]

NARRATIVE: CASE EVENT DATE: 20201111
